FAERS Safety Report 11113002 (Version 1)
Quarter: 2015Q2

REPORT INFORMATION
  Report Type: Spontaneous
  Country: DE (occurrence: None)
  Receive Date: 20150512
  Receipt Date: 20150512
  Transmission Date: 20150821
  Serious: Yes (Other)
  Sender: FDA-Public Use
  Company Number: DE-20150087

PATIENT
  Age: 43 Year
  Sex: Female
  Weight: 70 kg

DRUGS (1)
  1. DOTAREM [Suspect]
     Active Substance: GADOTERATE MEGLUMINE
     Indication: ANGIOGRAM
     Dosage: (NOT OTHERWISE SPECIFIED)
     Route: 042
     Dates: start: 20150421, end: 20150421

REACTIONS (6)
  - Tremor [None]
  - Chills [None]
  - Agitation [None]
  - Skin exfoliation [None]
  - Hypersensitivity [None]
  - Fatigue [None]

NARRATIVE: CASE EVENT DATE: 20150421
